FAERS Safety Report 15782037 (Version 3)
Quarter: 2019Q2

REPORT INFORMATION
  Report Type: Spontaneous
  Country: US (occurrence: US)
  Receive Date: 20190102
  Receipt Date: 20190605
  Transmission Date: 20190711
  Serious: No
  Sender: FDA-Public Use
  Company Number: US-PFIZER INC-2019000084

PATIENT
  Age: 79 Year
  Sex: Male

DRUGS (3)
  1. SIROLIMUS. [Suspect]
     Active Substance: SIROLIMUS
     Indication: LIVER TRANSPLANT
     Dosage: 0.5 MG, 1X/DAY
     Dates: start: 20180713, end: 201808
  2. SIROLIMUS. [Suspect]
     Active Substance: SIROLIMUS
     Dosage: 1 MG, 1X/DAY [1 MG J.W. ONCE A DAY]
     Route: 048
     Dates: start: 20180718, end: 201809
  3. LOSARTAN AND HYDROCHLOROTHIAZIDE [Concomitant]
     Active Substance: HYDROCHLOROTHIAZIDE\LOSARTAN POTASSIUM
     Indication: HYPERTENSION
     Dosage: UNK, 1X/DAY (100/25 MG ONCE A DAY)
     Dates: start: 2007, end: 201902

REACTIONS (9)
  - Off label use [Recovered/Resolved]
  - Stomatitis [Recovered/Resolved]
  - Malaise [Recovered/Resolved]
  - Fatigue [Recovered/Resolved]
  - Lip dry [Recovered/Resolved]
  - Drug ineffective for unapproved indication [Recovered/Resolved]
  - Ulcer [Recovered/Resolved]
  - Nasal dryness [Recovered/Resolved]
  - Dry skin [Recovered/Resolved]

NARRATIVE: CASE EVENT DATE: 201807
